FAERS Safety Report 22313081 (Version 1)
Quarter: 2023Q2

REPORT INFORMATION
  Report Type: Spontaneous
  Country: US (occurrence: US)
  Receive Date: 20230512
  Receipt Date: 20230512
  Transmission Date: 20230721
  Serious: No
  Sender: FDA-Public Use
  Company Number: US-ELI_LILLY_AND_COMPANY-US202305001271

PATIENT
  Sex: Male

DRUGS (4)
  1. MOUNJARO [Suspect]
     Active Substance: TIRZEPATIDE
     Indication: Product used for unknown indication
     Dosage: 2.5 MG, UNKNOWN
     Route: 065
     Dates: start: 2022
  2. MOUNJARO [Suspect]
     Active Substance: TIRZEPATIDE
     Indication: Product used for unknown indication
     Dosage: 5 MG, UNKNOWN
     Route: 058
  3. MOUNJARO [Suspect]
     Active Substance: TIRZEPATIDE
     Indication: Product used for unknown indication
     Dosage: 7.5 MG, OTHER (ONCE EVERY TEN DAYS)
     Route: 058
  4. MOUNJARO [Suspect]
     Active Substance: TIRZEPATIDE
     Indication: Product used for unknown indication
     Dosage: 10 MG, UNKNOWN
     Route: 058

REACTIONS (11)
  - Hypoacusis [Not Recovered/Not Resolved]
  - Product storage error [Unknown]
  - Inappropriate schedule of product administration [Unknown]
  - Cardiac disorder [Unknown]
  - Hunger [Unknown]
  - Feeling abnormal [Unknown]
  - Nausea [Unknown]
  - Abdominal pain upper [Unknown]
  - Dyspnoea [Unknown]
  - Dizziness [Unknown]
  - Diarrhoea [Unknown]
